FAERS Safety Report 24437233 (Version 1)
Quarter: 2024Q4

REPORT INFORMATION
  Report Type: Report from Study
  Country: FR (occurrence: FR)
  Receive Date: 20241015
  Receipt Date: 20241015
  Transmission Date: 20250115
  Serious: Yes (Other)
  Sender: PAREXEL
  Company Number: FR-Stemline Therapeutics, Inc.-2024ST002614

PATIENT

DRUGS (2)
  1. ORSERDU [Suspect]
     Active Substance: ELACESTRANT
     Indication: Breast cancer
     Dosage: 345 MG, DAILY
     Route: 065
     Dates: end: 20240418
  2. ORSERDU [Suspect]
     Active Substance: ELACESTRANT
     Dosage: 172 MG, DAILY
     Route: 065
     Dates: start: 20240419

REACTIONS (6)
  - Bradycardia [Unknown]
  - Toxicity to various agents [Unknown]
  - Abdominal pain upper [Unknown]
  - Nausea [Unknown]
  - Dyspnoea [Unknown]
  - Fatigue [Unknown]
